FAERS Safety Report 14457472 (Version 3)
Quarter: 2018Q1

REPORT INFORMATION
  Report Type: Spontaneous
  Country: US (occurrence: US)
  Receive Date: 20180130
  Receipt Date: 20180312
  Transmission Date: 20180509
  Serious: Yes (Hospitalization, Other)
  Sender: FDA-Public Use
  Company Number: US-PFIZER INC-2018037556

PATIENT
  Age: 70 Year
  Sex: Female
  Weight: 90.25 kg

DRUGS (2)
  1. IBRANCE [Suspect]
     Active Substance: PALBOCICLIB
     Indication: BREAST CANCER METASTATIC
     Dosage: 125 MG, CYCLIC (D1-21 EVERY 28 DAYS)
     Route: 048
     Dates: start: 20180111
  2. IBRANCE [Suspect]
     Active Substance: PALBOCICLIB
     Dosage: 100 MG, CYCLIC (D 1-21 Q 28 DAYS)
     Route: 048

REACTIONS (6)
  - Fracture [Unknown]
  - Anaemia [Unknown]
  - Neoplasm progression [Unknown]
  - Drug dose omission [Unknown]
  - Peripheral swelling [Unknown]
  - Muscle spasms [Recovering/Resolving]

NARRATIVE: CASE EVENT DATE: 201801
